FAERS Safety Report 8579516-2 (Version None)
Quarter: 2012Q3

REPORT INFORMATION
  Report Type: 
  Country: None (occurrence: None)
  Receive Date: 20120808
  Receipt Date: 20120802
  Transmission Date: 20120928
  Serious: Yes (Hospitalization)
  Sender: FDA-Public Use
  Company Number: IT-GLAXOSMITHKLINE-B0821314A

PATIENT
  Sex: Female

DRUGS (4)
  1. ACYCLOVIR [Concomitant]
  2. VELCADE [Concomitant]
  3. PREDNISONE TAB [Concomitant]
  4. ALKERAN [Suspect]
     Indication: MULTIPLE MYELOMA
     Dosage: 9MG PER DAY
     Route: 048
     Dates: start: 20101125, end: 20110721

REACTIONS (1)
  - ANAPHYLACTIC SHOCK [None]
